FAERS Safety Report 9084046 (Version 2)
Quarter: 2013Q1

REPORT INFORMATION
  Report Type: Spontaneous
  Country: US (occurrence: US)
  Receive Date: 20130130
  Receipt Date: 20130319
  Transmission Date: 20140127
  Serious: No
  Sender: FDA-Public Use
  Company Number: US-ROXANE LABORATORIES, INC.-2013-RO-00169RO

PATIENT
  Age: 50 Year
  Sex: Male

DRUGS (5)
  1. METHADONE [Suspect]
     Indication: PAIN
     Dosage: 120 MG
     Route: 048
  2. NORCO [Concomitant]
     Indication: PAIN
  3. XANAX [Concomitant]
     Indication: PAIN
  4. XANAX [Concomitant]
     Indication: ANXIETY
  5. VYVANSE [Concomitant]
     Indication: PAIN

REACTIONS (2)
  - Drug ineffective [Not Recovered/Not Resolved]
  - Product quality issue [Unknown]
